FAERS Safety Report 6817768-7 (Version None)
Quarter: 2010Q3

REPORT INFORMATION
  Report Type: 
  Country: None (occurrence: None)
  Receive Date: 20100706
  Receipt Date: 20100622
  Transmission Date: 20110219
  Serious: Yes (Life-Threatening)
  Sender: FDA-Public Use
  Company Number: FR-ASTRAZENECA-2010SE29238

PATIENT
  Age: 52 Year
  Sex: Female

DRUGS (3)
  1. DIPRIVAN [Suspect]
     Indication: INDUCTION OF ANAESTHESIA
     Route: 042
     Dates: start: 20100528
  2. CELOCURINE [Suspect]
     Indication: INDUCTION OF ANAESTHESIA
     Route: 042
     Dates: start: 20100528
  3. SUFENTA PRESERVATIVE FREE [Suspect]
     Indication: INDUCTION OF ANAESTHESIA
     Route: 042
     Dates: start: 20100528

REACTIONS (2)
  - BRONCHOSPASM [None]
  - CIRCULATORY COLLAPSE [None]
